FAERS Safety Report 22098143 (Version 1)
Quarter: 2023Q1

REPORT INFORMATION
  Report Type: Spontaneous
  Country: US (occurrence: None)
  Receive Date: 20230314
  Receipt Date: 20230314
  Transmission Date: 20230417
  Serious: No
  Sender: FDA-Public Use
  Company Number: None

PATIENT
  Sex: Male
  Weight: 67.59 kg

DRUGS (11)
  1. IBRANCE [Suspect]
     Active Substance: PALBOCICLIB
     Indication: Breast cancer female
     Dosage: FREQUENCY : DAILY;  21 DAYS ON , 7 DAYS OFF?
     Route: 048
     Dates: start: 20230209
  2. ALENDRONATE [Concomitant]
     Active Substance: ALENDRONATE SODIUM
  3. ANASTROZOLE [Concomitant]
     Active Substance: ANASTROZOLE
  4. VITAMINS [Concomitant]
     Active Substance: VITAMINS
  5. FULVESTRANT [Concomitant]
     Active Substance: FULVESTRANT
  6. LEVOTHYROXINE [Concomitant]
     Active Substance: LEVOTHYROXINE
  7. NITROGLYCERIN [Concomitant]
     Active Substance: NITROGLYCERIN
  8. SIMVASTATIN [Concomitant]
     Active Substance: SIMVASTATIN
  9. NAPROXEN [Concomitant]
     Active Substance: NAPROXEN
  10. XGEVA [Concomitant]
     Active Substance: DENOSUMAB
  11. ZOLPIDEM [Concomitant]
     Active Substance: ZOLPIDEM TARTRATE

REACTIONS (3)
  - Fatigue [None]
  - Dyspnoea [None]
  - White blood cell count decreased [None]
